FAERS Safety Report 16961141 (Version 1)
Quarter: 2019Q4

REPORT INFORMATION
  Report Type: Spontaneous
  Country: CN (occurrence: CN)
  Receive Date: 20191025
  Receipt Date: 20191025
  Transmission Date: 20200122
  Serious: Yes (Hospitalization)
  Sender: FDA-Public Use
  Company Number: ALC2019CN001172

PATIENT
  Age: 41 Year
  Sex: Male
  Weight: 65 kg

DRUGS (1)
  1. ALCAINE [Suspect]
     Active Substance: PROPARACAINE HYDROCHLORIDE
     Indication: FOREIGN BODY IN EYE
     Dosage: 1 DRP, OT
     Route: 047
     Dates: start: 20190920, end: 20190920

REACTIONS (1)
  - Corneal oedema [Recovered/Resolved]

NARRATIVE: CASE EVENT DATE: 20190920
